FAERS Safety Report 22069321 (Version 1)
Quarter: 2023Q1

REPORT INFORMATION
  Report Type: Spontaneous
  Country: US (occurrence: None)
  Receive Date: 20230306
  Receipt Date: 20230306
  Transmission Date: 20230417
  Serious: Yes (Other)
  Sender: FDA-Public Use
  Company Number: None

PATIENT
  Sex: Male
  Weight: 69.75 kg

DRUGS (1)
  1. CLONAZEPAM [Suspect]
     Active Substance: CLONAZEPAM

REACTIONS (8)
  - Depression [None]
  - Memory impairment [None]
  - Crying [None]
  - Drug dependence [None]
  - Product communication issue [None]
  - Nightmare [None]
  - Quality of life decreased [None]
  - Withdrawal syndrome [None]
